FAERS Safety Report 8441697 (Version 2)
Quarter: 2013Q3

REPORT INFORMATION
  Report Type: Spontaneous
  Country: FR (occurrence: FR)
  Receive Date: 20120305
  Receipt Date: 20130808
  Transmission Date: 20140515
  Serious: Yes (Hospitalization)
  Sender: FDA-Public Use
  Company Number: FR-ROCHE-1044399

PATIENT
  Sex: Female

DRUGS (4)
  1. AVASTIN [Suspect]
     Indication: PRODUCT USED FOR UNKNOWN INDICATION
     Route: 031
  2. DAFALGAN [Suspect]
     Indication: INFLUENZA
     Route: 065
     Dates: start: 20111204, end: 20111209
  3. AMOXICILLIN/CLAVULANIC ACID [Suspect]
     Indication: INFLUENZA
     Route: 065
     Dates: start: 20111205
  4. AUGMENTIN [Concomitant]

REACTIONS (5)
  - Oedema [Recovered/Resolved]
  - Rash pustular [Recovered/Resolved]
  - Pyrexia [Recovered/Resolved]
  - Hallucination [Recovered/Resolved]
  - Acute febrile neutrophilic dermatosis [Recovered/Resolved]
